FAERS Safety Report 6390266-3 (Version None)
Quarter: 2009Q4

REPORT INFORMATION
  Report Type: 
  Country: None (occurrence: None)
  Receive Date: 20091005
  Receipt Date: 20091005
  Transmission Date: 20100525
  Serious: Yes (Hospitalization)
  Sender: FDA-Public Use
  Company Number: None

PATIENT
  Age: 79 Year
  Sex: Male
  Weight: 101.2 kg

DRUGS (2)
  1. SPIRONOLACTONE [Suspect]
     Indication: HYPERTENSION
     Dosage: 25 MG EVERY DAY PO
     Route: 048
     Dates: start: 20080414, end: 20090519
  2. LOSARTAN [Suspect]
     Dosage: 50 MG EVERY DAY PO
     Route: 048
     Dates: start: 20081216

REACTIONS (2)
  - FALL [None]
  - HYPERKALAEMIA [None]
